FAERS Safety Report 11459760 (Version 2)
Quarter: 2015Q3

REPORT INFORMATION
  Report Type: Spontaneous
  Country: US (occurrence: None)
  Receive Date: 20150904
  Receipt Date: 20150925
  Transmission Date: 20151125
  Serious: Yes (Other)
  Sender: FDA-Public Use
  Company Number: US-MDT-ADR-2015-01714

PATIENT
  Age: 47 Year
  Sex: Female

DRUGS (1)
  1. BACLOFEN INTRATHECAL - 500 MCG/ML [Suspect]
     Active Substance: BACLOFEN
     Indication: MUSCLE SPASTICITY
     Dosage: 3 MCG/DAY

REACTIONS (1)
  - No therapeutic response [None]
